FAERS Safety Report 6442173-5 (Version None)
Quarter: 2009Q4

REPORT INFORMATION
  Report Type: 
  Country: None (occurrence: None)
  Receive Date: 20091112
  Receipt Date: 20091102
  Transmission Date: 20100525
  Serious: Yes (Disabling)
  Sender: FDA-Public Use
  Company Number: ADR46832009

PATIENT
  Age: 76 Year
  Sex: Male

DRUGS (2)
  1. SIMVASTATIN [Suspect]
     Indication: HYPERCHOLESTEROLAEMIA
     Dosage: 20 + 40 MG
     Route: 048
     Dates: start: 20060901, end: 20070320
  2. AMITRIPTYLINE HCL [Concomitant]

REACTIONS (4)
  - AMNESIA [None]
  - CHEST DISCOMFORT [None]
  - DEPRESSION [None]
  - NIGHT SWEATS [None]
